FAERS Safety Report 7943413-3 (Version None)
Quarter: 2011Q4

REPORT INFORMATION
  Report Type: 
  Country: None (occurrence: None)
  Receive Date: 20111128
  Receipt Date: 20111123
  Transmission Date: 20120403
  Serious: Yes (Hospitalization, Other)
  Sender: FDA-Public Use
  Company Number: JP-BAYER-200813184BYL

PATIENT
  Age: 71 Year
  Sex: Male
  Weight: 72.5 kg

DRUGS (22)
  1. NEXAVAR [Suspect]
     Dosage: 800 MG (DAILY DOSE), , ORAL
     Route: 048
     Dates: start: 20081212, end: 20090124
  2. NEXAVAR [Suspect]
     Dosage: 600 MG, QD
     Dates: start: 20110324, end: 20110518
  3. NEXAVAR [Suspect]
     Dosage: 600 MG, QD
     Dates: start: 20110728, end: 20110908
  4. MOBIC [Concomitant]
     Indication: METASTATIC PAIN
     Dosage: DAILY DOSE 10 MG
     Route: 048
     Dates: start: 20090814
  5. NEXAVAR [Suspect]
     Dosage: DAILY DOSE 400 MG
     Route: 048
     Dates: start: 20091022, end: 20110112
  6. UREPEARL [Concomitant]
     Indication: PROPHYLAXIS
     Route: 061
     Dates: start: 20081206
  7. NEXAVAR [Suspect]
     Dosage: DAILY DOSE 400 MG
     Route: 048
     Dates: start: 20090502, end: 20090625
  8. PROTECADIN [Concomitant]
     Indication: GASTRIC DISORDER
     Dosage: DAILY DOSE 10 MG
     Route: 048
     Dates: start: 20090701
  9. NEXAVAR [Suspect]
     Dosage: DAILY DOSE 400 MG
     Route: 048
     Dates: start: 20090711, end: 20090723
  10. NEXAVAR [Suspect]
     Dosage: DAILY DOSE 400 MG
     Route: 048
     Dates: start: 20090808, end: 20090923
  11. AMLODIPINE [Suspect]
     Dosage: 5 MG (DAILY DOSE), , ORAL
     Route: 048
     Dates: start: 20081108, end: 20081120
  12. HERBAL PREPARATION [Concomitant]
     Dosage: UNK
     Route: 048
     Dates: start: 20090814
  13. NEXAVAR [Suspect]
     Indication: RENAL CELL CARCINOMA
     Dosage: 800 MG (DAILY DOSE), , ORAL
     Route: 048
     Dates: start: 20081107, end: 20081123
  14. NEXAVAR [Suspect]
     Dosage: 400 MG (DAILY DOSE), , ORAL
     Route: 048
     Dates: start: 20081205, end: 20081211
  15. NEXAVAR [Suspect]
     Dosage: 800 MG, QD
     Dates: start: 20110113, end: 20110126
  16. NEXAVAR [Suspect]
     Dosage: 400 MG, QD
     Dates: start: 20110519, end: 20110727
  17. NEXAVAR [Suspect]
     Dosage: DAILY DOSE 400 MG
     Route: 048
     Dates: start: 20090327, end: 20090410
  18. NEXAVAR [Suspect]
     Dosage: 200 MG, BID
     Route: 048
     Dates: start: 20110910, end: 20110901
  19. NEXAVAR [Suspect]
     Dosage: DAILY DOSE 400 MG
     Route: 048
     Dates: start: 20090213, end: 20090313
  20. NEXAVAR [Suspect]
     Dosage: 400 MG, QD
     Dates: start: 20110201, end: 20110323
  21. APPETITE STIMULANTS [Concomitant]
     Indication: INCREASED APPETITE
     Dosage: DAILY DOSE 7.5 G
     Route: 048
     Dates: start: 20090701
  22. ALLOPURINOL [Concomitant]
     Indication: HYPERURICAEMIA
     Dosage: DAILY DOSE 100 MG
     Route: 048
     Dates: start: 20110818

REACTIONS (9)
  - PALMAR-PLANTAR ERYTHRODYSAESTHESIA SYNDROME [None]
  - MALAISE [None]
  - URTICARIA [None]
  - PROTEINURIA [None]
  - PYREXIA [None]
  - INFECTED DERMAL CYST [None]
  - NEPHROTIC SYNDROME [None]
  - HYPERTENSION [None]
  - DECREASED APPETITE [None]
